FAERS Safety Report 7343201-5 (Version None)
Quarter: 2011Q1

REPORT INFORMATION
  Report Type: 
  Country: None (occurrence: None)
  Receive Date: 20110310
  Receipt Date: 20110228
  Transmission Date: 20110831
  Serious: Yes (Other)
  Sender: FDA-Public Use
  Company Number: US-JNJFOC-20110301530

PATIENT
  Age: 60 Year
  Sex: Female

DRUGS (1)
  1. PRECISE EXTRA STRENGTH PAIN RELIEVING CREAM [Suspect]
     Indication: ARTHRALGIA
     Dosage: SMALL AMOUNT ON AREA
     Route: 061

REACTIONS (1)
  - ASTHMA [None]
